FAERS Safety Report 10592926 (Version 1)
Quarter: 2014Q4

REPORT INFORMATION
  Report Type: Spontaneous
  Country: US (occurrence: US)
  Receive Date: 20141119
  Receipt Date: 20141119
  Transmission Date: 20150529
  Serious: Yes (Other)
  Sender: FDA-Public Use
  Company Number: US-ACTAVIS-2014-24397

PATIENT

DRUGS (2)
  1. METOPROLOL (WATSON LABORATORIES) [Suspect]
     Active Substance: METOPROLOL
     Dosage: TWO, 12 HR (25MG) DOSES
     Route: 065
     Dates: end: 20140628
  2. METOPROLOL (WATSON LABORATORIES) [Suspect]
     Active Substance: METOPROLOL
     Indication: SUPRAVENTRICULAR TACHYCARDIA
     Dosage: 50 MG, DAILY
     Route: 065
     Dates: start: 20140611

REACTIONS (19)
  - Loss of consciousness [Unknown]
  - Night sweats [Unknown]
  - Nervousness [Unknown]
  - Weight decreased [Unknown]
  - Renal failure [Unknown]
  - Hallucination, auditory [Unknown]
  - Speech disorder [Unknown]
  - Hallucination, visual [Unknown]
  - Insomnia [Unknown]
  - Muscle spasms [Unknown]
  - Anxiety [Unknown]
  - Psychotic disorder [Unknown]
  - Paranoia [Unknown]
  - Nervous system disorder [Unknown]
  - Hypoaesthesia [Unknown]
  - Tachycardia [Unknown]
  - Chills [Unknown]
  - Mania [Unknown]
  - Mood swings [Unknown]

NARRATIVE: CASE EVENT DATE: 201408
